FAERS Safety Report 14054249 (Version 1)
Quarter: 2017Q4

REPORT INFORMATION
  Report Type: Spontaneous
  Country: US (occurrence: None)
  Receive Date: 20171006
  Receipt Date: 20171006
  Transmission Date: 20180321
  Serious: No
  Sender: FDA-Public Use
  Company Number: None

PATIENT
  Age: 75 Year
  Sex: Female

DRUGS (1)
  1. KISQALI [Suspect]
     Active Substance: RIBOCICLIB
     Route: 048

REACTIONS (5)
  - Fatigue [None]
  - Decreased appetite [None]
  - Dizziness [None]
  - White blood cell count decreased [None]
  - Diarrhoea [None]

NARRATIVE: CASE EVENT DATE: 20170901
